FAERS Safety Report 15680137 (Version 1)
Quarter: 2018Q4

REPORT INFORMATION
  Report Type: Spontaneous
  Country: FR (occurrence: FR)
  Receive Date: 20181203
  Receipt Date: 20181203
  Transmission Date: 20190205
  Serious: Yes (Death)
  Sender: FDA-Public Use
  Company Number: FR-BAUSCH-SYM-2013-05031

PATIENT
  Age: 37 Year

DRUGS (1)
  1. AMMONUL [Suspect]
     Active Substance: SODIUM BENZOATE\SODIUM PHENYLACETATE
     Indication: UREA CYCLE DISORDER
     Route: 065
     Dates: start: 20130614

REACTIONS (1)
  - Death [Fatal]

NARRATIVE: CASE EVENT DATE: 20130619
